FAERS Safety Report 6413668-5 (Version None)
Quarter: 2009Q4

REPORT INFORMATION
  Report Type: 
  Country: None (occurrence: None)
  Receive Date: 20091023
  Receipt Date: 20091023
  Transmission Date: 20100525
  Serious: Yes (Life-Threatening)
  Sender: FDA-Public Use
  Company Number: None

PATIENT
  Age: 55 Year
  Sex: Female
  Weight: 86.1834 kg

DRUGS (1)
  1. ARIMIDEX [Suspect]
     Indication: ANTIOESTROGEN THERAPY
     Dosage: 1 DAILY PO
     Route: 048
     Dates: start: 20090215, end: 20090515

REACTIONS (4)
  - BLOOD PRESSURE INCREASED [None]
  - MUSCLE SPASMS [None]
  - PAIN [None]
  - RENAL IMPAIRMENT [None]
